FAERS Safety Report 20001405 (Version 1)
Quarter: 2021Q4

REPORT INFORMATION
  Report Type: Spontaneous
  Country: US (occurrence: US)
  Receive Date: 20211027
  Receipt Date: 20211027
  Transmission Date: 20220304
  Serious: Yes (Hospitalization)
  Sender: FDA-Public Use
  Company Number: None

PATIENT
  Sex: Female
  Weight: 51.6 kg

DRUGS (3)
  1. TAXOL [Suspect]
     Active Substance: PACLITAXEL
  2. PERTUZUMAB [Concomitant]
     Active Substance: PERTUZUMAB
  3. HERCEPTIN [Concomitant]
     Active Substance: TRASTUZUMAB

REACTIONS (3)
  - Metabolic encephalopathy [None]
  - Metabolic alkalosis [None]
  - Oxygen saturation decreased [None]

NARRATIVE: CASE EVENT DATE: 20211016
